FAERS Safety Report 8345044-2 (Version None)
Quarter: 2012Q2

REPORT INFORMATION
  Report Type: 
  Country: None (occurrence: None)
  Receive Date: 20120508
  Receipt Date: 20120427
  Transmission Date: 20120825
  Serious: Yes (Hospitalization, Other)
  Sender: FDA-Public Use
  Company Number: US-ACTELION-A-NJ2012-63202

PATIENT

DRUGS (2)
  1. TRACLEER [Suspect]
     Indication: PULMONARY ARTERIAL HYPERTENSION
     Dosage: UNK
     Route: 048
     Dates: start: 20091204
  2. CALCIUM CHANNEL BLOCKERS [Concomitant]

REACTIONS (10)
  - DYSPNOEA [None]
  - ATRIAL FIBRILLATION [None]
  - MUSCULAR WEAKNESS [None]
  - COLONOSCOPY [None]
  - GASTROINTESTINAL DISORDER [None]
  - HALLUCINATION [None]
  - EPISTAXIS [None]
  - HEART RATE DECREASED [None]
  - ATRIAL FLUTTER [None]
  - FALL [None]
